FAERS Safety Report 25955217 (Version 2)
Quarter: 2025Q4

REPORT INFORMATION
  Report Type: Spontaneous
  Country: EU (occurrence: EU)
  Receive Date: 20251024
  Receipt Date: 20251029
  Transmission Date: 20260118
  Serious: Yes (Hospitalization, Other)
  Sender: AMGEN
  Company Number: EU-AMGEN-SVKSP2025206078

PATIENT
  Age: 20 Year
  Sex: Female

DRUGS (4)
  1. CINACALCET HYDROCHLORIDE [Suspect]
     Active Substance: CINACALCET HYDROCHLORIDE
     Indication: Parathyroid tumour benign
     Dosage: 30 MILLIGRAM, QD
     Route: 065
     Dates: end: 2007
  2. CINACALCET HYDROCHLORIDE [Suspect]
     Active Substance: CINACALCET HYDROCHLORIDE
     Indication: Blood parathyroid hormone increased
     Dosage: 30 MILLIGRAM, QD
     Route: 065
     Dates: start: 200709
  3. BROMOCRIPTINE [Concomitant]
     Active Substance: BROMOCRIPTINE
     Indication: Hyperprolactinaemia
     Dosage: UNK
     Route: 065
  4. NADROPARIN CALCIUM [Concomitant]
     Active Substance: NADROPARIN CALCIUM
     Indication: Anticoagulant therapy
     Dosage: UNK
     Dates: start: 2007

REACTIONS (7)
  - Parathyroid tumour benign [Unknown]
  - Polyhydramnios [Unknown]
  - Gestational diabetes [Unknown]
  - Hydronephrosis [Unknown]
  - Hydroureter [Unknown]
  - Maternal exposure during pregnancy [Unknown]
  - Anaemia [Unknown]

NARRATIVE: CASE EVENT DATE: 20070101
